FAERS Safety Report 4913876-6 (Version None)
Quarter: 2006Q1

REPORT INFORMATION
  Report Type: 
  Country: None (occurrence: None)
  Receive Date: 20060216
  Receipt Date: 20050609
  Transmission Date: 20060701
  Serious: Yes (Hospitalization)
  Sender: FDA-Public Use
  Company Number: US-MERCK-0506USA01557

PATIENT
  Age: 59 Year
  Sex: Male
  Weight: 91 kg

DRUGS (17)
  1. RESTORIL [Concomitant]
     Indication: INSOMNIA
     Route: 048
  2. MIRALAX [Concomitant]
     Route: 065
  3. VIOXX [Suspect]
     Indication: PAIN MANAGEMENT
     Route: 048
     Dates: start: 19990101, end: 20040101
  4. HYTRIN [Concomitant]
     Route: 048
  5. SENOKOT-S TABLETS [Concomitant]
     Route: 048
  6. FLOMAX (MORNIFLUMATE) [Concomitant]
     Route: 048
  7. PREVACID [Concomitant]
     Route: 048
  8. WELLBUTRIN SR [Concomitant]
     Route: 048
  9. KLONOPIN [Concomitant]
     Route: 048
  10. SOMA [Concomitant]
     Route: 048
  11. DURAGESIC-100 [Concomitant]
     Route: 065
  12. PAMELOR [Concomitant]
     Route: 065
  13. ACTIQ [Concomitant]
     Route: 065
  14. DILAUDID [Concomitant]
     Route: 065
  15. ZOFRAN [Concomitant]
     Indication: NAUSEA
     Route: 042
  16. TYLENOL [Concomitant]
     Indication: PYREXIA
     Route: 048
  17. VALIUM [Concomitant]
     Indication: MUSCLE SPASMS
     Route: 048

REACTIONS (10)
  - ACUTE CORONARY SYNDROME [None]
  - BACK PAIN [None]
  - CARDIAC FAILURE CONGESTIVE [None]
  - CHEST PAIN [None]
  - FALL [None]
  - HYPERLIPIDAEMIA [None]
  - IRON DEFICIENCY ANAEMIA [None]
  - MELAENA [None]
  - MYOCARDIAL INFARCTION [None]
  - PNEUMONITIS [None]
